FAERS Safety Report 21293093 (Version 2)
Quarter: 2022Q3

REPORT INFORMATION
  Report Type: Other
  Country: US (occurrence: None)
  Receive Date: 20220905
  Receipt Date: 20220922
  Transmission Date: 20221026
  Serious: Yes (Death)
  Sender: FDA-Public Use
  Company Number: US-ROCHE-2259175

PATIENT
  Sex: Male
  Weight: 63.1 kg

DRUGS (2)
  1. VALCYTE [Suspect]
     Active Substance: VALGANCICLOVIR HYDROCHLORIDE
     Indication: Organ transplant
     Dosage: 2 TABS DAILY, 450 MG
     Route: 048
     Dates: start: 20180807
  2. VALCYTE [Suspect]
     Active Substance: VALGANCICLOVIR HYDROCHLORIDE
     Indication: Lung transplant

REACTIONS (2)
  - Off label use [Unknown]
  - Pneumonia bacterial [Fatal]
